FAERS Safety Report 12953525 (Version 3)
Quarter: 2017Q1

REPORT INFORMATION
  Report Type: Spontaneous
  Country: US (occurrence: US)
  Receive Date: 20161117
  Receipt Date: 20170124
  Transmission Date: 20170428
  Serious: Yes (Other)
  Sender: FDA-Public Use
  Company Number: US-ALLERGAN-1676554US

PATIENT
  Age: 79 Year
  Sex: Male
  Weight: 83.9 kg

DRUGS (16)
  1. VITAMIN C [Concomitant]
     Active Substance: ASCORBIC ACID
     Indication: RHEUMATOID ARTHRITIS
     Dosage: 500 MG, BID
  2. GABAPENTIN. [Suspect]
     Active Substance: GABAPENTIN
     Indication: POST HERPETIC NEURALGIA
     Dosage: 400 MG, TID
     Dates: start: 201508
  3. NORTRIPTYLINE [Suspect]
     Active Substance: NORTRIPTYLINE
     Indication: NEURALGIA
     Dosage: 50 MG, BID
  4. CENTRUM [Concomitant]
     Active Substance: VITAMINS
     Indication: ROUTINE HEALTH MAINTENANCE
     Dosage: UNK UNK, QD
  5. ALLOPURINOL. [Concomitant]
     Active Substance: ALLOPURINOL
     Indication: BLOOD URIC ACID
     Dosage: 300 MG, QD
     Route: 048
  6. ASPIRIN. [Concomitant]
     Active Substance: ASPIRIN
     Indication: ANTICOAGULANT THERAPY
     Dosage: 81 MG, QD
     Dates: start: 20111012
  7. OCUVITE [Concomitant]
     Active Substance: VITAMINS
     Indication: MACULAR DEGENERATION
     Dosage: 2 DF, BID
  8. GLUCOSAMINE SULPHATE [Concomitant]
     Active Substance: GLUCOSAMINE
     Indication: RHEUMATOID ARTHRITIS
     Dosage: 500 MG, BID
     Dates: start: 20111111
  9. METOPROLOL TARTRATE. [Concomitant]
     Active Substance: METOPROLOL TARTRATE
     Indication: BLOOD PRESSURE MEASUREMENT
     Dosage: 25 MG, BID
     Route: 065
  10. GABAPENTIN. [Suspect]
     Active Substance: GABAPENTIN
     Indication: NEURALGIA
     Dosage: 800 MG, TID
  11. HYDROCODONE BITARTRATE;ACETAMINOPHEN UNK [Suspect]
     Active Substance: ACETAMINOPHEN\HYDROCODONE BITARTRATE
     Indication: POST HERPETIC NEURALGIA
     Dosage: 235 MG, UNKNOWN
     Route: 065
     Dates: start: 20111111, end: 201411
  12. ATORVASTATIN [Concomitant]
     Active Substance: ATORVASTATIN
     Indication: BLOOD CHOLESTEROL
     Dosage: 40 MG, QD
     Route: 048
  13. FOSINOPRIL W/HYDROCHLOROTHIAZIDE [Concomitant]
     Active Substance: FOSINOPRIL\HYDROCHLOROTHIAZIDE
     Indication: BLOOD PRESSURE MEASUREMENT
     Dosage: 10 MG/12.5 MG, QAM
     Route: 065
  14. HYDROCODONE BITARTRATE;ACETAMINOPHEN UNK [Suspect]
     Active Substance: ACETAMINOPHEN\HYDROCODONE BITARTRATE
     Indication: PAIN
  15. VITAMIN B12 [Concomitant]
     Active Substance: CYANOCOBALAMIN
     Dosage: 500 ?G, UNK
  16. ANOROL [Concomitant]
     Indication: PAIN

REACTIONS (21)
  - Macular degeneration [Unknown]
  - Electrocardiogram abnormal [Unknown]
  - Anaemia [Unknown]
  - Bone disorder [Unknown]
  - Dizziness [Recovered/Resolved]
  - Pulmonary arterial hypertension [Unknown]
  - Confusional state [Unknown]
  - Headache [Unknown]
  - Syncope [Recovered/Resolved]
  - Herpes zoster [Unknown]
  - Vision blurred [Recovered/Resolved]
  - Pain [Not Recovered/Not Resolved]
  - Drug ineffective [Unknown]
  - Dry mouth [Recovered/Resolved]
  - Fall [Recovered/Resolved]
  - Cardiac disorder [Unknown]
  - Cardiomegaly [Unknown]
  - Pulmonary mass [Unknown]
  - Depression [Not Recovered/Not Resolved]
  - Magnesium deficiency [Unknown]
  - Post herpetic neuralgia [Not Recovered/Not Resolved]

NARRATIVE: CASE EVENT DATE: 201111
